FAERS Safety Report 10678793 (Version 2)
Quarter: 2015Q1

REPORT INFORMATION
  Report Type: Spontaneous
  Country: US (occurrence: US)
  Receive Date: 20141229
  Receipt Date: 20150202
  Transmission Date: 20150720
  Serious: Yes (Other)
  Sender: FDA-Public Use
  Company Number: US-SHIRE-US201409103

PATIENT
  Age: 66 Year
  Sex: Male

DRUGS (4)
  1. 426 (MIDODRINE) [Suspect]
     Active Substance: MIDODRINE
     Dosage: 2.5 MG, ONE DOSE, AFTER CT SCAN
     Route: 048
  2. FLUDROCORTISONE [Concomitant]
     Active Substance: FLUDROCORTISONE
     Indication: ORTHOSTATIC HYPOTENSION
     Dosage: 0.5 MG, 2X/DAY:BID
     Route: 065
  3. 426 (MIDODRINE) [Suspect]
     Active Substance: MIDODRINE
     Dosage: 10 MG, 3X/DAY:TID
     Route: 048
  4. 426 (MIDODRINE) [Suspect]
     Active Substance: MIDODRINE
     Indication: ORTHOSTATIC HYPOTENSION
     Dosage: 2.5 MG, 3X/DAY:TID
     Route: 048

REACTIONS (8)
  - Syncope [Unknown]
  - Nausea [Unknown]
  - Cerebral haemorrhage [Recovered/Resolved]
  - Dizziness [Unknown]
  - Vomiting [Unknown]
  - Secondary hypertension [Unknown]
  - Drug effect decreased [Unknown]
  - Autonomic failure syndrome [Unknown]
